FAERS Safety Report 5613404-6 (Version None)
Quarter: 2008Q1

REPORT INFORMATION
  Report Type: 
  Country: None (occurrence: None)
  Receive Date: 20080129
  Receipt Date: 20080114
  Transmission Date: 20080703
  Serious: Yes (Hospitalization)
  Sender: FDA-Public Use
  Company Number: S08-GER-00245-01

PATIENT
  Age: 31 Year
  Sex: Female

DRUGS (3)
  1. ESCITALOPRAM [Suspect]
     Indication: BORDERLINE PERSONALITY DISORDER
     Dosage: 40 MG QD; PO
     Route: 048
     Dates: start: 20060401
  2. ESCITALOPRAM [Suspect]
     Indication: DEPRESSION
     Dosage: 40 MG QD; PO
     Route: 048
     Dates: start: 20060401
  3. TOPAMAX [Concomitant]

REACTIONS (3)
  - OVERDOSE [None]
  - POLYARTHRITIS [None]
  - URTICARIA [None]
